FAERS Safety Report 7284569-8 (Version None)
Quarter: 2011Q1

REPORT INFORMATION
  Report Type: 
  Country: None (occurrence: None)
  Receive Date: 20110210
  Receipt Date: 20110201
  Transmission Date: 20110831
  Serious: Yes (Hospitalization)
  Sender: FDA-Public Use
  Company Number: 2008BI015538

PATIENT
  Age: 64 Year
  Sex: Female
  Weight: 83 kg

DRUGS (4)
  1. AVONEX [Suspect]
     Route: 030
     Dates: start: 20030101, end: 20080620
  2. PROVIGIL [Concomitant]
     Indication: FATIGUE
  3. AVONEX [Suspect]
     Route: 030
     Dates: start: 20080620
  4. AVONEX [Suspect]
     Indication: MULTIPLE SCLEROSIS
     Route: 030
     Dates: start: 20000401, end: 20030101

REACTIONS (4)
  - POST PROCEDURAL HAEMATOMA [None]
  - AMNESIA [None]
  - INTRACRANIAL ANEURYSM [None]
  - CATARACT [None]
